FAERS Safety Report 13622724 (Version 2)
Quarter: 2017Q3

REPORT INFORMATION
  Report Type: Spontaneous
  Country: NL (occurrence: NL)
  Receive Date: 20170607
  Receipt Date: 20170728
  Transmission Date: 20171127
  Serious: Yes (Death, Other)
  Sender: FDA-Public Use
  Company Number: NL-VIIV HEALTHCARE LIMITED-NL2017GSK086951

PATIENT
  Age: 53 Year
  Sex: Male
  Weight: 84 kg

DRUGS (3)
  1. TRIUMEQ [Suspect]
     Active Substance: ABACAVIR SULFATE\DOLUTEGRAVIR SODIUM\LAMIVUDINE
     Indication: HIV INFECTION
     Dosage: UNK
     Dates: start: 20150608, end: 20170425
  2. ROSUVASTATIN. [Concomitant]
     Active Substance: ROSUVASTATIN
     Indication: PRODUCT USED FOR UNKNOWN INDICATION
     Dosage: 10 MG, QD
  3. OMEPRAZOLE. [Concomitant]
     Active Substance: OMEPRAZOLE
     Indication: PRODUCT USED FOR UNKNOWN INDICATION
     Dosage: 20 MG, QD

REACTIONS (4)
  - Suicidal ideation [Fatal]
  - Depression [Not Recovered/Not Resolved]
  - Panic attack [Not Recovered/Not Resolved]
  - Completed suicide [Fatal]

NARRATIVE: CASE EVENT DATE: 20170323
